FAERS Safety Report 6905569-0 (Version None)
Quarter: 2010Q3

REPORT INFORMATION
  Report Type: 
  Country: None (occurrence: None)
  Receive Date: 20100804
  Receipt Date: 20100726
  Transmission Date: 20110219
  Serious: Yes (Hospitalization)
  Sender: FDA-Public Use
  Company Number: US-BRISTOL-MYERS SQUIBB COMPANY-15194251

PATIENT
  Age: 59 Year
  Sex: Female

DRUGS (5)
  1. ONGLYZA [Suspect]
     Indication: TYPE 2 DIABETES MELLITUS
     Dates: start: 20100507, end: 20100101
  2. GLYBURIDE [Concomitant]
     Dates: start: 20070101
  3. METFORMIN HCL [Concomitant]
     Dates: start: 20070101
  4. LIPITOR [Concomitant]
     Dates: start: 20070101
  5. ACCUPRIL [Concomitant]
     Dates: start: 20070101

REACTIONS (1)
  - PANCREATITIS ACUTE [None]
